FAERS Safety Report 8308047-X (Version None)
Quarter: 2012Q2

REPORT INFORMATION
  Report Type: 
  Country: None (occurrence: None)
  Receive Date: 20120424
  Receipt Date: 20120412
  Transmission Date: 20120825
  Serious: No
  Sender: FDA-Public Use
  Company Number: US-ROXANE LABORATORIES, INC.-2012-RO-01067RO

PATIENT
  Age: 25 Year
  Sex: Female

DRUGS (3)
  1. BUPRENORPHINE HCL [Suspect]
     Dosage: 16 MG
     Route: 060
     Dates: start: 20120412
  2. ATIVAN [Concomitant]
  3. BUPRENORPHINE HCL [Suspect]
     Indication: SUBSTANCE ABUSE
     Route: 060
     Dates: start: 20120411, end: 20120411

REACTIONS (5)
  - APHAGIA [None]
  - PALPITATIONS [None]
  - ABDOMINAL DISCOMFORT [None]
  - VOMITING [None]
  - NAUSEA [None]
